FAERS Safety Report 7883761-9 (Version None)
Quarter: 2011Q4

REPORT INFORMATION
  Report Type: 
  Country: None (occurrence: None)
  Receive Date: 20111102
  Receipt Date: 20111024
  Transmission Date: 20120403
  Serious: Yes (Death)
  Sender: FDA-Public Use
  Company Number: IE-SANOFI-AVENTIS-2011SA065614

PATIENT
  Age: 44 Year
  Sex: Male

DRUGS (3)
  1. LANTUS [Suspect]
     Route: 065
  2. NOVORAPID [Suspect]
     Indication: TYPE 1 DIABETES MELLITUS
     Route: 065
  3. VARENICLINE TARTRATE [Suspect]
     Route: 065
     Dates: start: 20100806, end: 20101101

REACTIONS (1)
  - HYPOXIC-ISCHAEMIC ENCEPHALOPATHY [None]
